FAERS Safety Report 5988582-X (Version None)
Quarter: 2008Q4

REPORT INFORMATION
  Report Type: 
  Country: None (occurrence: None)
  Receive Date: 20081210
  Receipt Date: 20081128
  Transmission Date: 20090506
  Serious: Yes (Other)
  Sender: FDA-Public Use
  Company Number: CA-ROCHE-593554

PATIENT
  Sex: Male

DRUGS (1)
  1. ACCUTANE [Suspect]
     Indication: ACNE
     Dosage: DOSAGE REGIMEN: 2 X OD
     Route: 048
     Dates: start: 20080422, end: 20081024

REACTIONS (2)
  - DYSPNOEA [None]
  - PULMONARY THROMBOSIS [None]
